FAERS Safety Report 9188879 (Version 1)
Quarter: 2013Q1

REPORT INFORMATION
  Report Type: Spontaneous
  Country: US (occurrence: US)
  Receive Date: 20130326
  Receipt Date: 20130326
  Transmission Date: 20140127
  Serious: Yes (Hospitalization)
  Sender: FDA-Public Use
  Company Number: US-US-EMD SERONO, INC.-7201236

PATIENT
  Sex: Female

DRUGS (4)
  1. GONAL-F [Suspect]
     Indication: INFERTILITY
     Dates: start: 2010
  2. CLOMID [Suspect]
     Indication: ANOVULATORY CYCLE
  3. MENOPUR [Suspect]
     Indication: INFERTILITY
  4. OVIDREL [Suspect]
     Indication: PRODUCT USED FOR UNKNOWN INDICATION

REACTIONS (1)
  - Uterine leiomyoma [Recovered/Resolved]
